FAERS Safety Report 20127866 (Version 1)
Quarter: 2021Q4

REPORT INFORMATION
  Report Type: Spontaneous
  Country: US (occurrence: US)
  Receive Date: 20211129
  Receipt Date: 20211129
  Transmission Date: 20220303
  Serious: Yes (Death, Other)
  Sender: FDA-Public Use
  Company Number: US-ALXN-A202112886

PATIENT
  Age: 73 Year
  Sex: Male

DRUGS (2)
  1. ANDEXXA [Suspect]
     Active Substance: ANDEXANET ALFA
     Indication: Procoagulant therapy
     Dosage: 400 MG, UNK
     Route: 040
  2. ANDEXXA [Suspect]
     Active Substance: ANDEXANET ALFA
     Dosage: 480 MG, UNK
     Route: 042

REACTIONS (3)
  - Cerebrovascular accident [Fatal]
  - Cerebral infarction [Fatal]
  - Carotid artery thrombosis [Recovered/Resolved]
